FAERS Safety Report 17907848 (Version 1)
Quarter: 2020Q2

REPORT INFORMATION
  Report Type: Spontaneous
  Country: DE (occurrence: DE)
  Receive Date: 20200617
  Receipt Date: 20200617
  Transmission Date: 20200714
  Serious: Yes (Other)
  Sender: FDA-Public Use
  Company Number: DE-MYLANLABS-2020M1056045

PATIENT
  Sex: Male

DRUGS (2)
  1. QUILONIUM-R [Suspect]
     Active Substance: LITHIUM CARBONATE
     Indication: PRODUCT USED FOR UNKNOWN INDICATION
  2. TAMSULOSIN [Suspect]
     Active Substance: TAMSULOSIN
     Indication: PRODUCT USED FOR UNKNOWN INDICATION
     Dosage: INTAKE FOR SEVERAL YEARS
     Route: 048

REACTIONS (1)
  - Psychogenic visual disorder [Recovering/Resolving]

NARRATIVE: CASE EVENT DATE: 20200527
